FAERS Safety Report 7578288-8 (Version None)
Quarter: 2011Q2

REPORT INFORMATION
  Report Type: 
  Country: None (occurrence: None)
  Receive Date: 20110628
  Receipt Date: 20110619
  Transmission Date: 20111010
  Serious: Yes (Death, Other)
  Sender: FDA-Public Use
  Company Number: JO-ELI_LILLY_AND_COMPANY-JO201106007245

PATIENT
  Age: 77 Year
  Sex: Male

DRUGS (2)
  1. CISPLATIN [Concomitant]
     Indication: ADENOCARCINOMA
     Dosage: 75 MG/M2, UNK
  2. PEMETREXED [Suspect]
     Indication: ADENOCARCINOMA
     Dosage: 500 MG/M2, OTHER
     Route: 042
     Dates: start: 20101201

REACTIONS (3)
  - BONE MARROW FAILURE [None]
  - INFECTION [None]
  - DEATH [None]
